FAERS Safety Report 24620556 (Version 1)
Quarter: 2024Q4

REPORT INFORMATION
  Report Type: Spontaneous
  Country: NL (occurrence: NL)
  Receive Date: 20241114
  Receipt Date: 20241114
  Transmission Date: 20250115
  Serious: Yes (Other)
  Sender: SK LIFE SCIENCE
  Company Number: NL-ACRAF SpA-2024-036279

PATIENT

DRUGS (2)
  1. XCOPRI [Suspect]
     Active Substance: CENOBAMATE
     Indication: Lennox-Gastaut syndrome
     Dosage: 250MG/DAY OD 1 TABLET (250 MG,1 IN 1 D)
     Route: 065
  2. BRIVARACETAM [Concomitant]
     Active Substance: BRIVARACETAM
     Indication: Product used for unknown indication
     Dosage: 100MG TWICE A DAY 1 TABLET ( (100 MG,2 IN 1 D)
     Route: 065

REACTIONS (2)
  - Seizure [Unknown]
  - Off label use [Unknown]
